FAERS Safety Report 7632587-X (Version None)
Quarter: 2011Q3

REPORT INFORMATION
  Report Type: 
  Country: None (occurrence: None)
  Receive Date: 20110725
  Receipt Date: 20101022
  Transmission Date: 20111222
  Serious: Yes (Other)
  Sender: FDA-Public Use
  Company Number: US-BRISTOL-MYERS SQUIBB COMPANY-15347149

PATIENT
  Sex: Male
  Weight: 86 kg

DRUGS (7)
  1. DIOVAN [Concomitant]
  2. KEPPRA [Concomitant]
  3. AMBIEN [Concomitant]
  4. COUMADIN [Suspect]
     Indication: CEREBRAL THROMBOSIS
     Dosage: STOPPED FOR 2 DAYS,RESTARTED WITH 2.5MG(HALF TABS)
     Dates: start: 20101013
  5. HEPARIN SODIUM [Suspect]
  6. LOVENOX [Suspect]
  7. CLONAZEPAM [Concomitant]

REACTIONS (1)
  - INTERNATIONAL NORMALISED RATIO INCREASED [None]
